FAERS Safety Report 21144430 (Version 1)
Quarter: 2022Q3

REPORT INFORMATION
  Report Type: Spontaneous
  Country: US (occurrence: US)
  Receive Date: 20220728
  Receipt Date: 20220728
  Transmission Date: 20221027
  Serious: No
  Sender: FDA-Public Use
  Company Number: US-PFIZER INC-202201013947

PATIENT
  Age: 17 Month
  Sex: Male
  Weight: 10.43 kg

DRUGS (1)
  1. EUCRISA [Suspect]
     Active Substance: CRISABOROLE
     Indication: Eczema
     Dosage: UNK, 2X/DAY (ONCE IN MORNING AND ONCE AT NIGHT, USED A LITTLE DAB WENT A LONG WAY)
     Route: 061
     Dates: start: 202206, end: 20220719

REACTIONS (6)
  - Skin burning sensation [Recovering/Resolving]
  - Chemical burn [Recovering/Resolving]
  - Skin exfoliation [Recovering/Resolving]
  - Skin atrophy [Recovering/Resolving]
  - Skin laceration [Recovering/Resolving]
  - Blister [Recovering/Resolving]

NARRATIVE: CASE EVENT DATE: 20220714
